FAERS Safety Report 5642003-5 (Version None)
Quarter: 2008Q1

REPORT INFORMATION
  Report Type: 
  Country: None (occurrence: None)
  Receive Date: 20080227
  Receipt Date: 20080219
  Transmission Date: 20080703
  Serious: Yes (Other)
  Sender: FDA-Public Use
  Company Number: TR-ABBOTT-08P-161-0438949-00

PATIENT
  Age: 11 Year
  Sex: Female
  Weight: 30 kg

DRUGS (26)
  1. SEVOFLURANE [Suspect]
     Indication: MAINTENANCE OF ANAESTHESIA
     Route: 055
  2. CYCLOSPORINE [Suspect]
     Indication: DRUG USE FOR UNKNOWN INDICATION
  3. CYCLOSPORINE [Suspect]
  4. AMIKACIN SULFATE [Suspect]
     Indication: DRUG USE FOR UNKNOWN INDICATION
  5. AMIKACIN SULFATE [Suspect]
  6. CEFTRIAXONE [Suspect]
     Indication: DRUG USE FOR UNKNOWN INDICATION
  7. CEFTRIAXONE [Suspect]
  8. SPIRONOLACTONE [Concomitant]
     Indication: DRUG USE FOR UNKNOWN INDICATION
     Dosage: NOT REPORTED
  9. SPIRONOLACTONE [Concomitant]
  10. AZATHIOPRINE [Concomitant]
     Indication: DRUG USE FOR UNKNOWN INDICATION
  11. METHYLPREDNISOLONE [Concomitant]
     Indication: DRUG USE FOR UNKNOWN INDICATION
  12. METHYLPREDNISOLONE [Concomitant]
  13. PHYTOMENADIONE [Concomitant]
     Indication: DRUG USE FOR UNKNOWN INDICATION
  14. THIOPENTAL SODIUM [Concomitant]
     Indication: INDUCTION OF ANAESTHESIA
  15. MORPHINE [Concomitant]
     Indication: INDUCTION OF ANAESTHESIA
     Route: 042
  16. VECURONIUM BROMIDE [Concomitant]
     Indication: HYPOTONIA
  17. OXYGEN [Concomitant]
     Indication: MAINTENANCE OF ANAESTHESIA
     Route: 055
  18. NITROUS OXIDE [Concomitant]
     Indication: MAINTENANCE OF ANAESTHESIA
     Route: 055
  19. RINGER'S [Concomitant]
     Indication: DRUG USE FOR UNKNOWN INDICATION
  20. RINGER'S [Concomitant]
  21. RINGER'S [Concomitant]
  22. PLASMA [Concomitant]
     Indication: DRUG USE FOR UNKNOWN INDICATION
  23. PLASMA [Concomitant]
  24. PLASMA [Concomitant]
  25. BLOOD, WHOLE [Concomitant]
     Indication: DRUG USE FOR UNKNOWN INDICATION
  26. BLOOD, WHOLE [Concomitant]

REACTIONS (2)
  - METABOLIC DISORDER [None]
  - RENAL IMPAIRMENT [None]
